FAERS Safety Report 9490146 (Version 3)
Quarter: 2013Q4

REPORT INFORMATION
  Report Type: Spontaneous
  Country: US (occurrence: US)
  Receive Date: 20130830
  Receipt Date: 20131018
  Transmission Date: 20140711
  Serious: Yes (Hospitalization, Other)
  Sender: FDA-Public Use
  Company Number: US-B.I. PHARMACEUTICALS,INC./RIDGEFIELD-2013-BI-26441BP

PATIENT
  Age: 85 Year
  Sex: Male
  Weight: 185 kg

DRUGS (5)
  1. PRADAXA [Suspect]
     Indication: ATRIAL FIBRILLATION
     Dosage: 300 MG
     Route: 048
     Dates: start: 201010, end: 201208
  2. PRADAXA [Suspect]
     Indication: THROMBOSIS PROPHYLAXIS
     Dosage: 300 MG
     Route: 048
     Dates: start: 201212
  3. XARELTO [Concomitant]
     Dosage: 300 MG
     Dates: start: 201209, end: 201211
  4. PREDNISONE [Concomitant]
     Indication: GOUT
  5. ULORIC [Concomitant]
     Indication: GOUT

REACTIONS (22)
  - Adrenal insufficiency [Not Recovered/Not Resolved]
  - Cardiac failure [Recovered/Resolved]
  - Atrial fibrillation [Recovered/Resolved]
  - Blood creatinine increased [Not Recovered/Not Resolved]
  - Contusion [Not Recovered/Not Resolved]
  - Haemorrhage [Not Recovered/Not Resolved]
  - Laceration [Not Recovered/Not Resolved]
  - Contusion [Unknown]
  - Laceration [Unknown]
  - Increased tendency to bruise [Not Recovered/Not Resolved]
  - Increased tendency to bruise [Not Recovered/Not Resolved]
  - Increased tendency to bruise [Recovered/Resolved]
  - Haemorrhage [Recovered/Resolved]
  - Blood creatinine increased [Not Recovered/Not Resolved]
  - Laceration [Not Recovered/Not Resolved]
  - Wound haemorrhage [Recovered/Resolved]
  - Skin lesion [Recovered/Resolved]
  - Back pain [Not Recovered/Not Resolved]
  - Oedema peripheral [Recovered/Resolved]
  - Local swelling [Recovered/Resolved]
  - Arthralgia [Recovered/Resolved]
  - Haemorrhage [Not Recovered/Not Resolved]
